FAERS Safety Report 5654825-5 (Version None)
Quarter: 2008Q1

REPORT INFORMATION
  Report Type: 
  Country: None (occurrence: None)
  Receive Date: 20080307
  Receipt Date: 20070725
  Transmission Date: 20080703
  Serious: No
  Sender: FDA-Public Use
  Company Number: A0667385A

PATIENT
  Sex: Female

DRUGS (3)
  1. REQUIP [Suspect]
     Indication: RESTLESS LEGS SYNDROME
     Dosage: 1MG THREE TIMES PER DAY
     Route: 048
  2. TOPAMAX [Suspect]
     Indication: RESTLESS LEGS SYNDROME
     Dosage: 50MG TWICE PER DAY
     Route: 048
  3. CONCURRENT MEDICATIONS [Concomitant]

REACTIONS (2)
  - FEELING ABNORMAL [None]
  - TREATMENT NONCOMPLIANCE [None]
